FAERS Safety Report 17532349 (Version 4)
Quarter: 2020Q2

REPORT INFORMATION
  Report Type: Spontaneous
  Country: US (occurrence: US)
  Receive Date: 20200312
  Receipt Date: 20200625
  Transmission Date: 20200713
  Serious: No
  Sender: FDA-Public Use
  Company Number: US-JNJFOC-20200306385

PATIENT
  Age: 31 Year
  Sex: Male

DRUGS (5)
  1. INVEGA TRINZA [Suspect]
     Active Substance: PALIPERIDONE PALMITATE
  2. INVEGA TRINZA [Suspect]
     Active Substance: PALIPERIDONE PALMITATE
     Indication: SCHIZOAFFECTIVE DISORDER
     Route: 030
     Dates: start: 2017
  3. INVEGA TRINZA [Suspect]
     Active Substance: PALIPERIDONE PALMITATE
     Route: 030
     Dates: start: 2019
  4. PROPRANOLOL [Concomitant]
     Active Substance: PROPRANOLOL HYDROCHLORIDE
     Indication: CARDIAC DISORDER
     Route: 065
  5. LAMICTAL [Concomitant]
     Active Substance: LAMOTRIGINE
     Indication: TREMOR
     Route: 065

REACTIONS (20)
  - Device malfunction [Unknown]
  - Dysgraphia [Recovering/Resolving]
  - Dyspnoea [Recovering/Resolving]
  - Self-medication [Unknown]
  - Product use in unapproved indication [Unknown]
  - Gastrooesophageal reflux disease [Recovering/Resolving]
  - Wound [Recovering/Resolving]
  - Hostility [Recovering/Resolving]
  - Emotional disorder [Recovering/Resolving]
  - Exposure via skin contact [Unknown]
  - Ageusia [Recovering/Resolving]
  - Speech disorder [Unknown]
  - Product dose omission [Unknown]
  - Bowel movement irregularity [Recovering/Resolving]
  - Scab [Recovering/Resolving]
  - Depression [Unknown]
  - Off label use [Unknown]
  - Thinking abnormal [Recovering/Resolving]
  - Memory impairment [Unknown]
  - Headache [Recovering/Resolving]

NARRATIVE: CASE EVENT DATE: 202002
